FAERS Safety Report 9340425 (Version 3)
Quarter: 2013Q3

REPORT INFORMATION
  Report Type: Spontaneous
  Country: US (occurrence: US)
  Receive Date: 20130610
  Receipt Date: 20130828
  Transmission Date: 20140515
  Serious: Yes (Hospitalization, Other)
  Sender: FDA-Public Use
  Company Number: US-AMGEN-USASP2013039866

PATIENT
  Age: 33 Year
  Sex: Female
  Weight: 60.32 kg

DRUGS (4)
  1. ENBREL [Suspect]
     Indication: RHEUMATOID ARTHRITIS
     Dosage: 50 MG, QWK
     Route: 065
     Dates: start: 20000801
  2. PREDNISONE [Concomitant]
     Dosage: 5 MG, UNK
  3. PRENATAL VITAMINS                  /02014401/ [Concomitant]
     Dosage: UNK, QD
  4. FOLIC ACID [Concomitant]
     Dosage: 1 MG, QD

REACTIONS (3)
  - Premature delivery [Recovered/Resolved]
  - Caesarean section [Recovered/Resolved]
  - Premature rupture of membranes [Unknown]
